FAERS Safety Report 22124291 (Version 1)
Quarter: 2023Q1

REPORT INFORMATION
  Report Type: Spontaneous
  Country: US (occurrence: None)
  Receive Date: 20230321
  Receipt Date: 20230321
  Transmission Date: 20230418
  Serious: Yes (unspecified)
  Sender: FDA-Public Use
  Company Number: None

PATIENT
  Age: 23 Year
  Sex: Female

DRUGS (1)
  1. SERTRALINE [Suspect]
     Active Substance: SERTRALINE HYDROCHLORIDE
     Indication: Perinatal depression
     Dates: start: 20221004, end: 20230310

REACTIONS (3)
  - Rash erythematous [None]
  - Rash pruritic [None]
  - Acarodermatitis [None]

NARRATIVE: CASE EVENT DATE: 20230310
